FAERS Safety Report 9321323 (Version 2)
Quarter: 2014Q3

REPORT INFORMATION
  Report Type: Report from Study
  Country: JP (occurrence: JP)
  Receive Date: 20130531
  Receipt Date: 20140807
  Transmission Date: 20150326
  Serious: Yes (Hospitalization)
  Sender: FDA-Public Use
  Company Number: JP-ASTELLAS-2012JP005062

PATIENT
  Age: 17 Year
  Sex: Female
  Weight: 29 kg

DRUGS (34)
  1. PREDNISOLONE. [Concomitant]
     Active Substance: PREDNISOLONE
     Route: 048
     Dates: start: 20080228, end: 20080327
  2. PREDNISOLONE. [Concomitant]
     Active Substance: PREDNISOLONE
     Route: 048
     Dates: start: 20130122, end: 20130225
  3. PREDNISOLONE. [Concomitant]
     Active Substance: PREDNISOLONE
     Route: 048
     Dates: start: 20130226, end: 20130325
  4. PREDNISOLONE. [Concomitant]
     Active Substance: PREDNISOLONE
     Route: 048
     Dates: start: 20130524
  5. MOHRUS [Concomitant]
     Active Substance: KETOPROFEN
     Indication: BACK PAIN
     Route: 061
     Dates: start: 20080327, end: 20080427
  6. TACROLIMUS. [Suspect]
     Active Substance: TACROLIMUS
     Route: 048
     Dates: start: 20131004
  7. PREDNISOLONE. [Concomitant]
     Active Substance: PREDNISOLONE
     Indication: LUPUS NEPHRITIS
     Route: 048
     Dates: end: 20080131
  8. IMIGRAN                            /01044802/ [Concomitant]
     Active Substance: SUMATRIPTAN
     Indication: MIGRAINE
     Route: 048
     Dates: start: 20111110, end: 20120510
  9. METHYCOBAL [Concomitant]
     Active Substance: METHYLCOBALAMIN
     Indication: PROPHYLAXIS
     Route: 048
  10. TACROLIMUS. [Suspect]
     Active Substance: TACROLIMUS
     Indication: LUPUS NEPHRITIS
     Route: 048
     Dates: start: 20070222, end: 20131003
  11. PREDNISOLONE. [Concomitant]
     Active Substance: PREDNISOLONE
     Route: 048
     Dates: start: 20130105, end: 20130121
  12. GASTER [Concomitant]
     Active Substance: FAMOTIDINE
     Indication: PROPHYLAXIS
     Route: 048
     Dates: start: 20071227
  13. BAYASPIRIN [Concomitant]
     Active Substance: ASPIRIN
     Indication: ULNAR NERVE PALSY
     Route: 048
     Dates: start: 20130107
  14. CERCINE [Concomitant]
     Active Substance: DIAZEPAM
     Indication: INSOMNIA
     Route: 048
     Dates: start: 20121211, end: 20121213
  15. METHYLPREDNISOLONE [Concomitant]
     Active Substance: METHYLPREDNISOLONE
     Indication: LUPUS NEPHRITIS
     Route: 065
     Dates: start: 20121212, end: 20121214
  16. JUVELA [Concomitant]
     Active Substance: .ALPHA.-TOCOPHEROL\RETINOL
     Indication: CHILLBLAINS
     Dosage: ?????
     Route: 061
     Dates: start: 20080228, end: 20080327
  17. JUVELA [Concomitant]
     Active Substance: .ALPHA.-TOCOPHEROL\RETINOL
     Dosage: ?????
     Route: 061
     Dates: end: 20120520
  18. MOHRUS [Concomitant]
     Active Substance: KETOPROFEN
     Route: 061
  19. ONON [Concomitant]
     Active Substance: PRANLUKAST
     Indication: COLD URTICARIA
     Route: 048
     Dates: start: 20100722, end: 20111103
  20. PANVITAN                           /05664201/ [Concomitant]
     Indication: ULNAR NERVE PALSY
     Route: 048
     Dates: start: 20121211
  21. BAYASPIRIN [Concomitant]
     Active Substance: ASPIRIN
     Indication: PROPHYLAXIS
  22. PANVITAN                           /05664201/ [Concomitant]
     Indication: PROPHYLAXIS
     Dosage: ?? ??, 1?1?
     Route: 048
  23. PREDNISOLONE. [Concomitant]
     Active Substance: PREDNISOLONE
     Route: 048
     Dates: start: 20121221, end: 20130104
  24. METHYLPREDNISOLONE [Concomitant]
     Active Substance: METHYLPREDNISOLONE
     Dosage: UNK UNK, UNKNOWN FREQ.
     Route: 065
     Dates: start: 20121218, end: 20121220
  25. RINDERON VG [Concomitant]
     Active Substance: BETAMETHASONE VALERATE\GENTAMICIN SULFATE
     Indication: ECZEMA
     Dosage: UNK UNK, UNKNOWN FREQ.
     Route: 061
     Dates: start: 20081225, end: 20090121
  26. METHYCOBAL [Concomitant]
     Active Substance: METHYLCOBALAMIN
     Indication: ULNAR NERVE PALSY
     Route: 048
     Dates: start: 20121211
  27. PREDNISOLONE. [Concomitant]
     Active Substance: PREDNISOLONE
     Route: 048
     Dates: start: 20130326, end: 20130523
  28. GASTER [Concomitant]
     Active Substance: FAMOTIDINE
     Route: 048
  29. CELECOX [Concomitant]
     Active Substance: CELECOXIB
     Indication: ARTHRALGIA
     Dosage: UNK, UNKNOWN FREQ.
     Route: 048
     Dates: start: 20081225
  30. NEUROTROPIN [Concomitant]
     Active Substance: NEUROTROPIN
     Indication: FIBROMYALGIA
     Dosage: UNK UNK, UNKNOWN FREQ.
     Route: 048
  31. PREDNISOLONE. [Concomitant]
     Active Substance: PREDNISOLONE
     Route: 048
     Dates: start: 20080201, end: 20080227
  32. PREDNISOLONE. [Concomitant]
     Active Substance: PREDNISOLONE
     Route: 048
     Dates: start: 20080328, end: 20080424
  33. PREDNISOLONE. [Concomitant]
     Active Substance: PREDNISOLONE
     Route: 048
     Dates: start: 20080425, end: 20121211
  34. PREDNISOLONE. [Concomitant]
     Active Substance: PREDNISOLONE
     Route: 048
     Dates: start: 20121215, end: 20121217

REACTIONS (5)
  - Off label use [Unknown]
  - Migraine [Recovering/Resolving]
  - Insomnia [Recovering/Resolving]
  - Acne [Recovered/Resolved]
  - Ulnar nerve palsy [Recovering/Resolving]

NARRATIVE: CASE EVENT DATE: 20111020
